FAERS Safety Report 13792176 (Version 1)
Quarter: 2017Q3

REPORT INFORMATION
  Report Type: Spontaneous
  Country: US (occurrence: US)
  Receive Date: 20170725
  Receipt Date: 20170725
  Transmission Date: 20171127
  Serious: No
  Sender: FDA-Public Use
  Company Number: US-ROCHE-782194

PATIENT
  Age: 57 Year
  Sex: Female

DRUGS (6)
  1. PREDNISOLONE ACETATE. [Concomitant]
     Active Substance: PREDNISOLONE ACETATE
     Indication: PROPHYLAXIS
     Route: 065
  2. ACULAR [Suspect]
     Active Substance: KETOROLAC TROMETHAMINE
     Indication: PROPHYLAXIS
     Dosage: DRUG NAME: KETOROLAC TROMETHAMINE 0.4%
     Route: 065
  3. ACULAR [Suspect]
     Active Substance: KETOROLAC TROMETHAMINE
     Route: 065
  4. PREDNISOLONE ACETATE. [Concomitant]
     Active Substance: PREDNISOLONE ACETATE
     Route: 065
  5. GATIFLOXACIN. [Concomitant]
     Active Substance: GATIFLOXACIN
     Route: 065
  6. GATIFLOXACIN. [Concomitant]
     Active Substance: GATIFLOXACIN
     Indication: PROPHYLAXIS
     Route: 065

REACTIONS (2)
  - Keratitis [Unknown]
  - Ulcerative keratitis [Unknown]
